FAERS Safety Report 12437034 (Version 1)
Quarter: 2016Q2

REPORT INFORMATION
  Report Type: Spontaneous
  Country: US (occurrence: None)
  Receive Date: 20160603
  Receipt Date: 20160603
  Transmission Date: 20160815
  Serious: No
  Sender: FDA-Public Use
  Company Number: None

PATIENT
  Age: 45 Year
  Sex: Female
  Weight: 142 kg

DRUGS (2)
  1. TAXOL [Suspect]
     Active Substance: PACLITAXEL
     Dates: end: 20100222
  2. HERCEPTIN [Suspect]
     Active Substance: TRASTUZUMAB
     Dates: end: 20100222

REACTIONS (1)
  - Multiple gated acquisition scan abnormal [None]

NARRATIVE: CASE EVENT DATE: 20100308
